FAERS Safety Report 5938011-7 (Version None)
Quarter: 2008Q4

REPORT INFORMATION
  Report Type: 
  Country: None (occurrence: None)
  Receive Date: 20081031
  Receipt Date: 20081022
  Transmission Date: 20090506
  Serious: Yes (Hospitalization)
  Sender: FDA-Public Use
  Company Number: JP-PFIZER INC-2008085161

PATIENT
  Age: 73 Year
  Sex: Male

DRUGS (10)
  1. AMLODIN [Suspect]
     Route: 048
  2. ALDACTONE [Concomitant]
     Route: 048
  3. HARNAL [Concomitant]
     Route: 048
  4. ALOSITOL [Concomitant]
     Route: 048
  5. LASIX [Concomitant]
  6. NU LOTAN [Concomitant]
     Route: 048
  7. BASEN [Concomitant]
     Route: 048
  8. SERMION [Concomitant]
     Route: 048
  9. KETAS [Concomitant]
  10. OPALMON [Concomitant]
     Route: 048

REACTIONS (1)
  - ATRIOVENTRICULAR BLOCK [None]
